FAERS Safety Report 7979893 (Version 2)
Quarter: 2013Q1

REPORT INFORMATION
  Report Type: Spontaneous
  Country: FR (occurrence: FR)
  Receive Date: 20110608
  Receipt Date: 20130325
  Transmission Date: 20140127
  Serious: Yes (Life-Threatening, Other)
  Sender: FDA-Public Use
  Company Number: FR-ROCHE-775545

PATIENT
  Age: 50 Year
  Sex: Female
  Weight: 61.5 kg

DRUGS (14)
  1. MIRCERA [Suspect]
     Indication: NEPHROGENIC ANAEMIA
     Route: 042
     Dates: start: 20110226, end: 20110423
  2. ATENOLOL [Concomitant]
     Indication: HYPERTENSION
     Dosage: EXCEPT DAYS OF DIALYSIS SESSION
     Route: 048
  3. KARDEGIC [Concomitant]
     Indication: ARTERIAL DISORDER
     Dosage: KARDEGIC 75
     Route: 048
  4. NOVONORM [Concomitant]
     Indication: TYPE 2 DIABETES MELLITUS
     Route: 048
  5. EZETROL [Concomitant]
     Indication: PROPHYLAXIS
     Route: 048
  6. MEDIATENSYL [Concomitant]
     Route: 048
  7. LASILIX [Concomitant]
     Route: 048
  8. MIMPARA [Concomitant]
     Route: 065
  9. SPECIAFOLDINE [Concomitant]
     Route: 065
  10. KARDEGIC [Concomitant]
  11. RENAGEL [Concomitant]
     Route: 065
  12. IXPRIM [Concomitant]
     Route: 065
  13. DOLIPRANE [Concomitant]
     Indication: PAIN
     Dosage: IF REQUIRED
     Route: 065
  14. BINOCRIT [Concomitant]

REACTIONS (7)
  - Circulatory collapse [Recovered/Resolved]
  - Anaphylactoid reaction [Recovered/Resolved]
  - Hypersensitivity [Recovered/Resolved]
  - Bronchospasm [Recovered/Resolved]
  - Chest pain [Recovered/Resolved]
  - Hypotension [Recovered/Resolved]
  - Vomiting [Recovered/Resolved]
